FAERS Safety Report 8429234-6 (Version None)
Quarter: 2012Q2

REPORT INFORMATION
  Report Type: 
  Country: None (occurrence: None)
  Receive Date: 20120612
  Receipt Date: 20120530
  Transmission Date: 20120825
  Serious: Yes (Other)
  Sender: FDA-Public Use
  Company Number: JP-SANOFI-AVENTIS-2011SA041860

PATIENT
  Age: 77 Year
  Sex: Female
  Weight: 42 kg

DRUGS (23)
  1. CLOPIDOGREL BISULFATE [Suspect]
     Route: 048
     Dates: start: 20090605, end: 20090605
  2. ASPIRIN [Concomitant]
     Route: 048
     Dates: start: 20090605
  3. LASIX [Concomitant]
     Route: 048
     Dates: start: 20090614, end: 20090618
  4. HEPARIN [Concomitant]
     Route: 042
     Dates: start: 20090605, end: 20090605
  5. WARFARIN [Concomitant]
     Route: 048
     Dates: start: 20090625, end: 20090702
  6. WARFARIN [Concomitant]
     Route: 048
     Dates: start: 20091124
  7. SODIUM POLYSTYRENE SULFONATE [Concomitant]
     Route: 048
     Dates: start: 20091124, end: 20100104
  8. ZOLPIDEM [Concomitant]
     Indication: INSOMNIA
     Dates: start: 20091124
  9. CRESTOR [Concomitant]
     Indication: HYPERLIPIDAEMIA
     Route: 048
     Dates: start: 20090606
  10. LANSOPRAZOLE [Concomitant]
     Indication: PROPHYLAXIS AGAINST GASTROINTESTINAL ULCER
     Route: 048
     Dates: start: 20090605
  11. WARFARIN [Concomitant]
     Route: 048
     Dates: start: 20090721, end: 20091123
  12. HEPARIN [Concomitant]
     Dates: start: 20090618, end: 20090618
  13. LOSARTAN POTASSIUM [Concomitant]
     Route: 048
     Dates: start: 20090605
  14. SIGMART [Concomitant]
     Dosage: 2 MG/HR, MAINTAINENCE DOSE
     Route: 041
     Dates: start: 20090605, end: 20090606
  15. CEFAZOLIN [Concomitant]
     Indication: INFECTION PROPHYLAXIS
     Dates: start: 20090618, end: 20090618
  16. SIGMART [Concomitant]
     Route: 048
     Dates: start: 20090606
  17. ALDACTONE [Concomitant]
     Route: 048
     Dates: start: 20090614, end: 20090618
  18. CARVEDILOL [Concomitant]
     Route: 048
     Dates: start: 20090612
  19. WARFARIN [Concomitant]
     Route: 048
     Dates: start: 20090703, end: 20090720
  20. CLOPIDOGREL BISULFATE [Suspect]
     Route: 048
     Dates: start: 20090606, end: 20100305
  21. HEPARIN [Concomitant]
     Dosage: 300-500 IU/HR, CONTINUOUSLY
     Route: 041
     Dates: start: 20090605, end: 20090606
  22. CARVEDILOL [Concomitant]
     Route: 048
     Dates: start: 20090606, end: 20090611
  23. NICORANDIL [Concomitant]
     Dosage: 2 MG/HR, MAINTAINENECE DOSE
     Dates: start: 20090618, end: 20090619

REACTIONS (1)
  - ANAEMIA [None]
